FAERS Safety Report 6097854-2 (Version None)
Quarter: 2009Q1

REPORT INFORMATION
  Report Type: 
  Country: None (occurrence: None)
  Receive Date: 20090227
  Receipt Date: 20090224
  Transmission Date: 20090719
  Serious: Yes (Death, Hospitalization, Other)
  Sender: FDA-Public Use
  Company Number: US-ABBOTT-08P-163-0494719-00

PATIENT
  Age: 87 Year
  Sex: Male

DRUGS (4)
  1. ZEMPLAR [Suspect]
     Indication: HYPERPARATHYROIDISM
     Dates: start: 20080101
  2. UNKNOWN BLOOD PRESSURE MEDICATION [Concomitant]
     Indication: HYPERTENSION
  3. UNKNOWN IRON MEDICATION [Concomitant]
     Indication: HAEMORRHAGE
  4. UNKNOWN DIABETIC MEDICATION [Concomitant]
     Indication: DIABETES MELLITUS

REACTIONS (6)
  - BLOOD TEST ABNORMAL [None]
  - CARDIAC DISORDER [None]
  - CARDIAC FAILURE CONGESTIVE [None]
  - DIABETES MELLITUS [None]
  - RENAL IMPAIRMENT [None]
  - SWELLING [None]
